FAERS Safety Report 18938382 (Version 2)
Quarter: 2021Q2

REPORT INFORMATION
  Report Type: Spontaneous
  Country: US (occurrence: US)
  Receive Date: 20210225
  Receipt Date: 20210408
  Transmission Date: 20210717
  Serious: No
  Sender: FDA-Public Use
  Company Number: US-ASTRAZENECA-2021A028338

PATIENT
  Sex: Female
  Weight: 41.3 kg

DRUGS (5)
  1. SYMBICORT [Suspect]
     Active Substance: BUDESONIDE\FORMOTEROL FUMARATE DIHYDRATE
     Indication: CHRONIC OBSTRUCTIVE PULMONARY DISEASE
     Dosage: 80/4.5 ONE PUFF TWICE A DAY
     Route: 055
     Dates: start: 202008
  2. SYMBICORT [Suspect]
     Active Substance: BUDESONIDE\FORMOTEROL FUMARATE DIHYDRATE
     Indication: LUNG DISORDER
     Dosage: ONE PUFF AT NIGHT
     Route: 055
  3. SYMBICORT [Suspect]
     Active Substance: BUDESONIDE\FORMOTEROL FUMARATE DIHYDRATE
     Indication: LUNG DISORDER
     Dosage: 80/4.5 ONE PUFF TWICE A DAY
     Route: 055
     Dates: start: 202008
  4. SYMBICORT [Suspect]
     Active Substance: BUDESONIDE\FORMOTEROL FUMARATE DIHYDRATE
     Indication: CHRONIC OBSTRUCTIVE PULMONARY DISEASE
     Dosage: ONE PUFF AT NIGHT
     Route: 055
  5. NASACOURT [Concomitant]

REACTIONS (15)
  - Wrong technique in device usage process [Unknown]
  - Myalgia [Unknown]
  - Product use issue [Unknown]
  - Device failure [Unknown]
  - Arthralgia [Unknown]
  - Eye disorder [Unknown]
  - Intentional device misuse [Unknown]
  - Arthropathy [Unknown]
  - Intentional product misuse [Unknown]
  - Confusional state [Unknown]
  - Device delivery system issue [Unknown]
  - Dizziness [Unknown]
  - Muscular weakness [Unknown]
  - Memory impairment [Unknown]
  - Blood potassium decreased [Unknown]
